FAERS Safety Report 19967744 (Version 1)
Quarter: 2021Q4

REPORT INFORMATION
  Report Type: Spontaneous
  Country: US (occurrence: US)
  Receive Date: 20211018
  Receipt Date: 20211018
  Transmission Date: 20220303
  Serious: Yes (Other)
  Sender: FDA-Public Use
  Company Number: None

PATIENT
  Age: 51 Year
  Sex: Female
  Weight: 101.25 kg

DRUGS (1)
  1. HYDROCHLOROTHIAZIDE [Suspect]
     Active Substance: HYDROCHLOROTHIAZIDE
     Indication: Hypertension
     Dosage: ?          QUANTITY:1 TABLET(S);
     Route: 048
     Dates: start: 20210920

REACTIONS (4)
  - Drug ineffective [None]
  - Pain in extremity [None]
  - Back pain [None]
  - Chest pain [None]

NARRATIVE: CASE EVENT DATE: 20210701
